FAERS Safety Report 21849602 (Version 1)
Quarter: 2023Q1

REPORT INFORMATION
  Report Type: Report from Study
  Country: JP (occurrence: JP)
  Receive Date: 20230111
  Receipt Date: 20230111
  Transmission Date: 20230418
  Serious: Yes (Other)
  Sender: FDA-Public Use
  Company Number: JP-002147023-NVSC2021JP134764

PATIENT
  Age: 36 Year
  Sex: Female

DRUGS (2)
  1. GILENYA [Suspect]
     Active Substance: FINGOLIMOD HYDROCHLORIDE
     Indication: Multiple sclerosis
     Dosage: 0.5 MG, QD
     Route: 048
     Dates: start: 20200330, end: 20211004
  2. SOLU-MEDROL [Concomitant]
     Active Substance: METHYLPREDNISOLONE SODIUM SUCCINATE
     Indication: Multiple sclerosis relapse
     Dosage: 1000 MG, QD
     Route: 042
     Dates: start: 20200805, end: 20200806

REACTIONS (4)
  - Breast neoplasm [Not Recovered/Not Resolved]
  - Hypertonic bladder [Not Recovered/Not Resolved]
  - Meralgia paraesthetica [Recovered/Resolved]
  - Breast induration [Not Recovered/Not Resolved]

NARRATIVE: CASE EVENT DATE: 20210412
